FAERS Safety Report 8937154 (Version 1)
Quarter: 2012Q4

REPORT INFORMATION
  Report Type: Spontaneous
  Country: US (occurrence: None)
  Receive Date: 20121128
  Receipt Date: 20121128
  Transmission Date: 20130627
  Serious: Yes (Hospitalization)
  Sender: FDA-Public Use
  Company Number: None

PATIENT
  Age: 71 Year
  Sex: Female
  Weight: 90.9 kg

DRUGS (30)
  1. TRAMADOL [Suspect]
  2. BUTRANS [Suspect]
  3. LORAZEPAM [Suspect]
  4. CYCLOBENZAPRINE [Suspect]
  5. MECLIZINE [Suspect]
  6. ARIPIPRAZOLE [Suspect]
  7. BACTRIM DS [Concomitant]
  8. COUMADIN [Concomitant]
  9. KENALOG [Concomitant]
  10. TRIAMCINOLONE [Concomitant]
  11. NOVALOG [Concomitant]
  12. ASA [Concomitant]
  13. MACRODANTIN [Concomitant]
  14. PANTOPRAZOLE [Concomitant]
  15. ALUM HYDROXIDE [Concomitant]
  16. SIMETHICONE [Concomitant]
  17. SENN [Concomitant]
  18. APAP [Concomitant]
  19. POLYCARBOPHIL [Concomitant]
  20. NTG [Concomitant]
  21. ALBUTEROL [Concomitant]
  22. LISINOPRIL [Concomitant]
  23. KCL [Concomitant]
  24. ISOSORBIDE MONO [Concomitant]
  25. LASIX [Concomitant]
  26. CERTIRIZINE [Concomitant]
  27. LOPRESSOR [Concomitant]
  28. CA+VIT D [Concomitant]
  29. MVI [Concomitant]
  30. SIMVASTATIN [Concomitant]

REACTIONS (4)
  - Presyncope [None]
  - Fall [None]
  - Head injury [None]
  - Polymedication [None]
